FAERS Safety Report 4449512-5 (Version None)
Quarter: 2004Q3

REPORT INFORMATION
  Report Type: 
  Country: None (occurrence: None)
  Receive Date: 20040913
  Receipt Date: 20040913
  Transmission Date: 20050211
  Serious: Yes (Life-Threatening)
  Sender: FDA-Public Use
  Company Number: None

PATIENT
  Age: 30 Year
  Sex: Male
  Weight: 70.3075 kg

DRUGS (1)
  1. PAXIL [Suspect]
     Dosage: 20  DAILY  ORAL
     Route: 048

REACTIONS (1)
  - SUICIDE ATTEMPT [None]
